FAERS Safety Report 8972806 (Version 1)
Quarter: 2012Q4

REPORT INFORMATION
  Report Type: 
  Country: BE (occurrence: BE)
  Receive Date: 20121219
  Receipt Date: 20121219
  Transmission Date: 20130627
  Serious: Yes (Other)
  Sender: FDA-Public Use
  Company Number: BE-MYLANLABS-2012S1025855

PATIENT
  Age: 55 Year
  Sex: Female

DRUGS (5)
  1. ACICLOVIR [Suspect]
     Indication: GENITAL HERPES
     Route: 048
  2. ACICLOVIR [Suspect]
     Indication: GENITAL HERPES
  3. ACICLOVIR [Suspect]
     Indication: GENITAL HERPES
  4. VITAMIN D [Concomitant]
     Indication: PRODUCT USED FOR UNKNOWN INDICATION
  5. CALCIUM [Concomitant]
     Indication: PRODUCT USED FOR UNKNOWN INDICATION

REACTIONS (2)
  - Fatigue [Recovered/Resolved]
  - Bone density decreased [Unknown]
